FAERS Safety Report 8350328 (Version 4)
Quarter: 2014Q2

REPORT INFORMATION
  Report Type: Spontaneous
  Country: US (occurrence: US)
  Receive Date: 20120124
  Receipt Date: 20140624
  Transmission Date: 20141212
  Serious: No
  Sender: FDA-Public Use
  Company Number: US-PFIZER INC-2012014431

PATIENT
  Age: 68 Year
  Sex: Male
  Weight: 70.3 kg

DRUGS (2)
  1. LYRICA [Suspect]
     Indication: FIBROMYALGIA
     Dosage: 100 MG, 3X/DAY
     Dates: start: 2011
  2. LYRICA [Suspect]
     Indication: PAIN
     Dosage: 100 MG, 4X/DAY

REACTIONS (2)
  - Pain [Recovering/Resolving]
  - Somnolence [Unknown]
